FAERS Safety Report 4372170-5 (Version None)
Quarter: 2004Q2

REPORT INFORMATION
  Report Type: 
  Country: None (occurrence: None)
  Receive Date: 20040607
  Receipt Date: 20031112
  Transmission Date: 20050107
  Serious: Yes (Disabling)
  Sender: FDA-Public Use
  Company Number: BE-GLAXOSMITHKLINE-B0315294A

PATIENT
  Age: 72 Year
  Sex: Male
  Weight: 72 kg

DRUGS (4)
  1. CLAMOXYL [Suspect]
     Indication: BRONCHOPNEUMONIA
     Dosage: 1G PER DAY
     Route: 030
     Dates: start: 20031021, end: 20031024
  2. INFLIXIMAB [Concomitant]
     Indication: RHEUMATOID ARTHRITIS
     Dosage: 3MGK WEEKLY
     Route: 042
  3. METHOTREXATE [Concomitant]
     Dosage: 10MG WEEKLY
     Route: 048
  4. PREDNISOLONE [Concomitant]
     Dosage: 2.5MG TWICE PER DAY
     Route: 048

REACTIONS (5)
  - MEDICATION ERROR [None]
  - MONOPLEGIA [None]
  - PAIN IN EXTREMITY [None]
  - SCIATIC NERVE INJURY [None]
  - SCIATICA [None]
